FAERS Safety Report 12041423 (Version 3)
Quarter: 2016Q2

REPORT INFORMATION
  Report Type: Spontaneous
  Country: US (occurrence: US)
  Receive Date: 20160208
  Receipt Date: 20160527
  Transmission Date: 20160815
  Serious: No
  Sender: FDA-Public Use
  Company Number: US-PFIZER INC-2016071710

PATIENT
  Age: 61 Year
  Sex: Female
  Weight: 56 kg

DRUGS (9)
  1. PREDNISONE. [Concomitant]
     Active Substance: PREDNISONE
     Indication: HERPES ZOSTER
     Dosage: UNK(TAKEN 1-2 WEEKS, CERTAIN DOSE IN THE MORNING, AT NIGHT, CHANGES THE NEXT DAY AND SO ON)
     Dates: start: 20150202
  2. CALCIUM [Concomitant]
     Active Substance: CALCIUM
     Dosage: UNK
  3. GABAPENTIN. [Suspect]
     Active Substance: GABAPENTIN
     Indication: POST HERPETIC NEURALGIA
     Dosage: 600 MG, 2X/DAY ( (300MG, 2 CAPSULES IN MORNING, 2 AT NIGHT))
     Dates: start: 20150226, end: 20150312
  4. DULOXETINE. [Concomitant]
     Active Substance: DULOXETINE
     Dosage: UNK
  5. MAGNESIUM [Concomitant]
     Active Substance: MAGNESIUM
     Dosage: UNK
  6. AMITRIPTYLINE [Concomitant]
     Active Substance: AMITRIPTYLINE
     Dosage: 25 MG, UNK
  7. VITAMIN D [Concomitant]
     Active Substance: CHOLECALCIFEROL
     Dosage: UNK
  8. MUPIROCIN. [Concomitant]
     Active Substance: MUPIROCIN
     Dosage: 2 %, UNK
     Dates: start: 20150312
  9. ACYCLOVIR. [Concomitant]
     Active Substance: ACYCLOVIR
     Dosage: 800 MG, 3X/DAY
     Dates: start: 20150202

REACTIONS (1)
  - Drug ineffective [Not Recovered/Not Resolved]

NARRATIVE: CASE EVENT DATE: 20150312
